FAERS Safety Report 10197886 (Version 2)
Quarter: 2014Q2

REPORT INFORMATION
  Report Type: Spontaneous
  Country: US (occurrence: US)
  Receive Date: 20140527
  Receipt Date: 20140626
  Transmission Date: 20141212
  Serious: Yes (Hospitalization)
  Sender: FDA-Public Use
  Company Number: US-BRISTOL-MYERS SQUIBB COMPANY-20756201

PATIENT
  Sex: Male

DRUGS (11)
  1. ELIQUIS [Suspect]
     Dates: end: 20140502
  2. CIPRO [Suspect]
  3. SINEMET [Concomitant]
     Dosage: 1 DF=25 TO 100,EVERY NIGHT AT BED TIME
  4. CHOLESTYRAMINE [Concomitant]
  5. FINASTERIDE [Concomitant]
     Dosage: EVERY NIGHT AT BED TIME
  6. FUROSEMIDE [Concomitant]
  7. LORAZEPAM [Concomitant]
  8. OMEPRAZOLE [Concomitant]
  9. RANITIDINE [Concomitant]
     Dosage: EVERY NIGHT AT BED TIME
  10. POTASSIUM [Concomitant]
  11. SULFASALAZINE [Concomitant]

REACTIONS (1)
  - Stevens-Johnson syndrome [Recovered/Resolved]
